FAERS Safety Report 7298900-0 (Version None)
Quarter: 2011Q1

REPORT INFORMATION
  Report Type: 
  Country: None (occurrence: None)
  Receive Date: 20110217
  Receipt Date: 20110204
  Transmission Date: 20110831
  Serious: Yes (Other)
  Sender: FDA-Public Use
  Company Number: PHHY2009CA21059

PATIENT
  Sex: Female

DRUGS (2)
  1. SANDOSTATIN LAR [Suspect]
     Dosage: 30 MG EVERY 4 WEEKS
     Route: 030
  2. SANDOSTATIN LAR [Suspect]
     Indication: CARCINOID TUMOUR
     Dosage: 30 MG, QMO
     Route: 030
     Dates: start: 20080401

REACTIONS (7)
  - NEOPLASM MALIGNANT [None]
  - FLUSHING [None]
  - LIVER DISORDER [None]
  - EMOTIONAL DISTRESS [None]
  - FEELING HOT [None]
  - FLATULENCE [None]
  - DIARRHOEA [None]
